FAERS Safety Report 9182331 (Version 1)
Quarter: 2013Q1

REPORT INFORMATION
  Report Type: Spontaneous
  Country: FR (occurrence: FR)
  Receive Date: 20130322
  Receipt Date: 20130322
  Transmission Date: 20140127
  Serious: Yes (Hospitalization)
  Sender: FDA-Public Use
  Company Number: FR-PFIZER INC-2013089777

PATIENT
  Age: 86 Year
  Sex: Male

DRUGS (6)
  1. TAHOR [Suspect]
     Indication: DYSLIPIDAEMIA
     Dosage: 40 MG, 1X/DAY
     Route: 048
     Dates: end: 20120101
  2. COVERSYL [Concomitant]
     Indication: HYPERTENSION
     Dosage: UNK
     Route: 048
  3. OGAST [Concomitant]
     Indication: GASTROOESOPHAGEAL REFLUX DISEASE
     Dosage: UNK
     Route: 048
  4. LASILIX [Concomitant]
     Indication: HYPERTENSION
     Dosage: UNK
     Route: 048
  5. KARDEGIC [Concomitant]
     Indication: PROPHYLAXIS
     Dosage: UNK
     Route: 048
  6. KALEORID [Concomitant]
     Dosage: 600 MG, 2X/DAY
     Route: 048

REACTIONS (3)
  - Rhabdomyolysis [Recovered/Resolved]
  - Torticollis [Unknown]
  - Spondylitis [Unknown]
